FAERS Safety Report 17818195 (Version 8)
Quarter: 2020Q2

REPORT INFORMATION
  Report Type: Report from Study
  Country: FR (occurrence: FR)
  Receive Date: 20200522
  Receipt Date: 20200622
  Transmission Date: 20200714
  Serious: Yes (Hospitalization)
  Sender: FDA-Public Use
  Company Number: FR-EISAI MEDICAL RESEARCH-EC-2020-075045

PATIENT
  Age: 81 Year
  Sex: Male
  Weight: 71.8 kg

DRUGS (19)
  1. PEMBROLIZUMAB. [Suspect]
     Active Substance: PEMBROLIZUMAB
     Route: 041
     Dates: start: 20200605
  2. LANTUS [Concomitant]
     Active Substance: INSULIN GLARGINE
     Dates: start: 20130118
  3. TAMSULOSIN HYDROCHLORIDE. [Concomitant]
     Active Substance: TAMSULOSIN HYDROCHLORIDE
     Dates: start: 201001
  4. UREA CREAM [Concomitant]
     Active Substance: UREA
     Dates: start: 20200130
  5. DEXERYL CREAM [Concomitant]
     Active Substance: GLYCERIN\MINERAL OIL\PETROLATUM
     Dates: start: 20200130
  6. LENVATINIB [Suspect]
     Active Substance: LENVATINIB
     Indication: HEPATOCELLULAR CARCINOMA
     Route: 048
     Dates: start: 20200221, end: 20200515
  7. PEMBROLIZUMAB. [Suspect]
     Active Substance: PEMBROLIZUMAB
     Route: 041
     Dates: start: 20200515, end: 20200515
  8. CLOPIDOGREL [Concomitant]
     Active Substance: CLOPIDOGREL BISULFATE
     Dates: start: 20171021
  9. FENOFIBRATE. [Concomitant]
     Active Substance: FENOFIBRATE
     Dates: start: 20120615
  10. METFORMIN [Concomitant]
     Active Substance: METFORMIN HYDROCHLORIDE
     Dates: start: 201301
  11. GALVUS [Concomitant]
     Active Substance: VILDAGLIPTIN
     Dates: start: 20171021
  12. LENVATINIB [Suspect]
     Active Substance: LENVATINIB
     Route: 048
     Dates: start: 20200522, end: 20200529
  13. PEMBROLIZUMAB. [Suspect]
     Active Substance: PEMBROLIZUMAB
     Indication: HEPATOCELLULAR CARCINOMA
     Route: 041
     Dates: start: 20200221, end: 20200423
  14. KARDEGIC [Concomitant]
     Active Substance: ASPIRIN DL-LYSINE
     Dates: start: 201711
  15. RAMIPRIL. [Concomitant]
     Active Substance: RAMIPRIL
     Dates: start: 20101018
  16. HYDROCHLOROTHIAZIDE. [Concomitant]
     Active Substance: HYDROCHLOROTHIAZIDE
     Dates: start: 20101018
  17. LOGIMAX [Concomitant]
     Active Substance: FELODIPINE\METOPROLOL SUCCINATE
     Dates: start: 20190708
  18. LANSOPRAZOLE. [Concomitant]
     Active Substance: LANSOPRAZOLE
     Dates: start: 201411
  19. VESICARE [Concomitant]
     Active Substance: SOLIFENACIN SUCCINATE
     Dates: start: 201403

REACTIONS (3)
  - Confusional state [Recovered/Resolved]
  - Malaise [Recovered/Resolved]
  - Accidental overdose [Recovered/Resolved]

NARRATIVE: CASE EVENT DATE: 20200516
